FAERS Safety Report 9729738 (Version 2)
Quarter: 2015Q3

REPORT INFORMATION
  Report Type: Spontaneous
  Country: US (occurrence: US)
  Receive Date: 20131204
  Receipt Date: 20150804
  Transmission Date: 20151125
  Serious: No
  Sender: FDA-Public Use
  Company Number: US-GILEAD-2009-0022212

PATIENT
  Age: 54 Year
  Sex: Male
  Weight: 66.22 kg

DRUGS (12)
  1. WARFARIN [Concomitant]
     Active Substance: WARFARIN
  2. METOLAZONE. [Concomitant]
     Active Substance: METOLAZONE
  3. ALDACTONE [Concomitant]
     Active Substance: SPIRONOLACTONE
  4. COMBIVENT [Concomitant]
     Active Substance: ALBUTEROL SULFATE\IPRATROPIUM BROMIDE
  5. ADVAIR 250-50 DISKUS [Concomitant]
  6. REVATIO [Concomitant]
     Active Substance: SILDENAFIL CITRATE
  7. WARFARIN [Concomitant]
     Active Substance: WARFARIN
  8. LASIX [Concomitant]
     Active Substance: FUROSEMIDE
  9. LOVENOX [Concomitant]
     Active Substance: ENOXAPARIN SODIUM
  10. LOPROX 1% SHAMPOO [Concomitant]
  11. POTASIUM CHLOR [Concomitant]
  12. LETAIRIS [Suspect]
     Active Substance: AMBRISENTAN
     Indication: PULMONARY ARTERIAL HYPERTENSION
     Route: 048
     Dates: start: 20080714, end: 20090521

REACTIONS (1)
  - Liver function test abnormal [Not Recovered/Not Resolved]

NARRATIVE: CASE EVENT DATE: 20090520
